FAERS Safety Report 17866020 (Version 1)
Quarter: 2020Q2

REPORT INFORMATION
  Report Type: Spontaneous
  Country: FR (occurrence: FR)
  Receive Date: 20200605
  Receipt Date: 20200605
  Transmission Date: 20200714
  Serious: Yes (Hospitalization)
  Sender: FDA-Public Use
  Company Number: FR-009507513-2006FRA000447

PATIENT
  Age: 55 Year
  Sex: Female
  Weight: 52 kg

DRUGS (4)
  1. EFFEXOR [Suspect]
     Active Substance: VENLAFAXINE HYDROCHLORIDE
     Indication: AFFECTIVE DISORDER
     Dosage: 150 MILLIGRAM, QD
     Route: 048
     Dates: end: 20200402
  2. AERIUS (DESLORATADINE) [Suspect]
     Active Substance: DESLORATADINE
     Indication: CONJUNCTIVITIS ALLERGIC
     Dosage: 5 MILLIGRAM, PRN (1 AS NECESSARY)
     Route: 048
     Dates: end: 20200402
  3. LYSANXIA [Suspect]
     Active Substance: PRAZEPAM
     Indication: AFFECTIVE DISORDER
     Dosage: UNK
     Route: 048
  4. IMOVANE [Suspect]
     Active Substance: ZOPICLONE
     Indication: AFFECTIVE DISORDER
     Dosage: 3.75 MILLIGRAM, QD
     Route: 048
     Dates: end: 20200402

REACTIONS (2)
  - Transaminases increased [Recovered/Resolved]
  - Cholestasis [Not Recovered/Not Resolved]

NARRATIVE: CASE EVENT DATE: 20200402
